FAERS Safety Report 12118957 (Version 2)
Quarter: 2016Q1

REPORT INFORMATION
  Report Type: Spontaneous
  Country: US (occurrence: US)
  Receive Date: 20160226
  Receipt Date: 20160331
  Transmission Date: 20160526
  Serious: No
  Sender: FDA-Public Use
  Company Number: US-009507513-1602USA011734

PATIENT
  Age: 51 Year
  Sex: Female
  Weight: 83.45 kg

DRUGS (7)
  1. METFORMIN [Concomitant]
     Active Substance: METFORMIN HYDROCHLORIDE
     Dosage: TOTAL DAILY DOSE: 1000 MG
  2. JANUVIA [Suspect]
     Active Substance: SITAGLIPTIN PHOSPHATE
     Indication: TYPE 2 DIABETES MELLITUS
     Dosage: STARTED PRIOR TO 2013; 100 MG, DAILY
     Route: 048
     Dates: end: 201301
  3. HYDROCHLOROTHIAZIDE. [Concomitant]
     Active Substance: HYDROCHLOROTHIAZIDE
     Dosage: TOTAL DAILY DOSE: 12.5 MG
     Route: 048
  4. INVOKANA [Concomitant]
     Active Substance: CANAGLIFLOZIN
     Dosage: TOTAL DAILY DOSE: 100 MG
     Route: 048
  5. PRINIVIL [Concomitant]
     Active Substance: LISINOPRIL
     Dosage: 5 MG, QD
     Route: 048
  6. LANTUS [Concomitant]
     Active Substance: INSULIN GLARGINE
     Dosage: 28 UNITS, SUBCUT.
     Route: 058
  7. JANUVIA [Suspect]
     Active Substance: SITAGLIPTIN PHOSPHATE
     Dosage: 100 MG, DAILY
     Route: 048
     Dates: start: 201304

REACTIONS (3)
  - Arthralgia [Recovered/Resolved]
  - Oedema [Recovered/Resolved]
  - Soft tissue swelling [Recovered/Resolved]

NARRATIVE: CASE EVENT DATE: 201511
